FAERS Safety Report 10191768 (Version 1)
Quarter: 2014Q2

REPORT INFORMATION
  Report Type: Spontaneous
  Country: US (occurrence: US)
  Receive Date: 20140523
  Receipt Date: 20140523
  Transmission Date: 20141212
  Serious: Yes (Congenital Anomaly, Other)
  Sender: FDA-Public Use
  Company Number: US-ABBVIE-14P-163-1239194-00

PATIENT
  Sex: Female

DRUGS (1)
  1. DEPAKOTE [Suspect]
     Indication: MATERNAL EXPOSURE TIMING UNSPECIFIED
     Route: 064

REACTIONS (17)
  - Injury [Unknown]
  - Cleft palate [Unknown]
  - Foetal exposure during pregnancy [Unknown]
  - Autism [Unknown]
  - Congenital anomaly [Unknown]
  - Pain [Unknown]
  - Activities of daily living impaired [Unknown]
  - Injury [Unknown]
  - Deformity [Unknown]
  - Pain [Unknown]
  - Pain [Unknown]
  - Emotional distress [Unknown]
  - Social problem [Unknown]
  - Anhedonia [Unknown]
  - Life expectancy shortened [Unknown]
  - Social problem [Unknown]
  - Loss of employment [Unknown]
